FAERS Safety Report 7951961-5 (Version None)
Quarter: 2011Q4

REPORT INFORMATION
  Report Type: 
  Country: None (occurrence: None)
  Receive Date: 20111201
  Receipt Date: 20111122
  Transmission Date: 20120403
  Serious: Yes (Hospitalization)
  Sender: FDA-Public Use
  Company Number: GB-PFIZER INC-2011286351

PATIENT
  Age: 60 Year
  Sex: Female

DRUGS (8)
  1. RAMIPRIL [Suspect]
     Indication: HYPERTENSION
     Dosage: 2.5 MG, 1X/DAY
     Route: 048
     Dates: start: 20110801
  2. AMOXICILLIN [Concomitant]
     Route: 065
  3. FESOTERODINE [Concomitant]
     Indication: HYPERTONIC BLADDER
     Dosage: UNK
     Route: 065
     Dates: start: 20110714, end: 20110929
  4. ADRENALIN IN OIL INJ [Concomitant]
     Route: 065
  5. OMEPRAZOLE [Suspect]
     Dosage: 20 MG, 1X/DAY
     Route: 048
     Dates: start: 20110817
  6. METRONIDAZOLE [Concomitant]
     Route: 065
  7. CHLORPHENIRAMINE MALEATE [Concomitant]
     Route: 065
  8. CORTICOSTEROID NOS [Concomitant]
     Route: 065

REACTIONS (4)
  - RHABDOMYOLYSIS [None]
  - MUSCULAR WEAKNESS [None]
  - MYALGIA [None]
  - BLOOD CREATINE PHOSPHOKINASE INCREASED [None]
